FAERS Safety Report 25750553 (Version 1)
Quarter: 2025Q3

REPORT INFORMATION
  Report Type: Spontaneous
  Country: US (occurrence: None)
  Receive Date: 20250829
  Receipt Date: 20250829
  Transmission Date: 20251020
  Serious: Yes (Hospitalization)
  Sender: FDA-CTU
  Company Number: None

PATIENT
  Age: 74 Year
  Sex: Female

DRUGS (18)
  1. TERIFLUNOMIDE [Suspect]
     Active Substance: TERIFLUNOMIDE
     Dosage: FREQUENCY : DAILY;?
     Route: 048
  2. ALPRAZOLAM [Concomitant]
     Active Substance: ALPRAZOLAM
  3. Carteolol HCl 1% Oph Soln [Concomitant]
  4. CHLORHEXIDINE [Concomitant]
     Active Substance: CHLORHEXIDINE
  5. DALFAMPRIDINE [Concomitant]
     Active Substance: DALFAMPRIDINE
  6. Docusate 100mg capsules [Concomitant]
  7. Dorzolamide 2% ophth solution [Concomitant]
  8. Fenofibrate 160mg tablets [Concomitant]
  9. Fluticasone 50mcg nasal sprays [Concomitant]
  10. FUROSEMIDE [Concomitant]
     Active Substance: FUROSEMIDE
  11. Losartan/HCTZ 100mg/12.5 mg tablets [Concomitant]
  12. MELOXICAM [Concomitant]
     Active Substance: MELOXICAM
  13. MONTELUKAST SODIUM [Concomitant]
     Active Substance: MONTELUKAST SODIUM
  14. OMEPRAZOLE [Concomitant]
     Active Substance: OMEPRAZOLE
  15. Teriflunomide 14mg tablets [Concomitant]
  16. TRAMADOL [Concomitant]
     Active Substance: TRAMADOL
  17. XARELTO [Concomitant]
     Active Substance: RIVAROXABAN
  18. Triamcin/orabas 0.1% dent-past [Concomitant]

REACTIONS (2)
  - Fall [None]
  - Stress fracture [None]

NARRATIVE: CASE EVENT DATE: 20250704
